FAERS Safety Report 25076421 (Version 1)
Quarter: 2025Q1

REPORT INFORMATION
  Report Type: Spontaneous
  Country: CH (occurrence: CH)
  Receive Date: 20250313
  Receipt Date: 20250313
  Transmission Date: 20250408
  Serious: Yes (Other)
  Sender: PFIZER
  Company Number: CH-PFIZER INC-202500055700

PATIENT
  Age: 79 Year
  Sex: Female

DRUGS (1)
  1. AXITINIB [Suspect]
     Active Substance: AXITINIB
     Indication: Clear cell renal cell carcinoma
     Dates: start: 202307

REACTIONS (1)
  - Acute hepatic failure [Unknown]

NARRATIVE: CASE EVENT DATE: 20230801
